FAERS Safety Report 11916781 (Version 1)
Quarter: 2016Q1

REPORT INFORMATION
  Report Type: Spontaneous
  Country: BG (occurrence: BG)
  Receive Date: 20160114
  Receipt Date: 20160114
  Transmission Date: 20160526
  Serious: Yes (Hospitalization)
  Sender: FDA-Public Use
  Company Number: BG-SYNTHON BV-NL01PV16_40335

PATIENT
  Age: 70 Year
  Sex: Male

DRUGS (1)
  1. FOKUSIN [Suspect]
     Active Substance: TAMSULOSIN
     Indication: BENIGN PROSTATIC HYPERPLASIA
     Dosage: UNK
     Route: 048
     Dates: start: 201504

REACTIONS (2)
  - Rash pruritic [Not Recovered/Not Resolved]
  - Dermatitis [Recovered/Resolved]
